FAERS Safety Report 4773471-9 (Version None)
Quarter: 2005Q3

REPORT INFORMATION
  Report Type: 
  Country: None (occurrence: None)
  Receive Date: 20050914
  Receipt Date: 20041102
  Transmission Date: 20060218
  Serious: Yes (Hospitalization, Other)
  Sender: FDA-Public Use
  Company Number: 163-20785-04110078

PATIENT
  Age: 61 Year
  Sex: Male
  Weight: 86.3 kg

DRUGS (3)
  1. THALOMID [Suspect]
     Indication: MULTIPLE MYELOMA
     Dosage: 200 MG, QD, ORAL
     Route: 048
     Dates: start: 20020926, end: 20021204
  2. DEXAMETHASONE [Suspect]
     Indication: MULTIPLE MYELOMA
     Dosage: 40 MG, QD DAYS 1-4, 9-12, 17-20 Q28D X 4 CYCLES, ORAL
     Route: 048
     Dates: start: 20020926, end: 20021203
  3. ZOLEDRONIC ACID (ZOLEDRONIC ACID) [Suspect]
     Indication: MULTIPLE MYELOMA
     Dosage: 4 MG, GIVENON DAY 1 + ON WEEKS 4,8,12,16,INTRAVENOUS
     Route: 042

REACTIONS (5)
  - CHEST PAIN [None]
  - OEDEMA PERIPHERAL [None]
  - PNEUMONITIS [None]
  - PULMONARY EMBOLISM [None]
  - PYREXIA [None]
